FAERS Safety Report 22389387 (Version 1)
Quarter: 2023Q2

REPORT INFORMATION
  Report Type: Report from Study
  Country: PH (occurrence: PH)
  Receive Date: 20230531
  Receipt Date: 20230531
  Transmission Date: 20230722
  Serious: Yes (Hospitalization, Other)
  Sender: FDA-Public Use
  Company Number: PH-OTSUKA-2023_014073

PATIENT
  Sex: Female

DRUGS (1)
  1. TOLVAPTAN [Suspect]
     Active Substance: TOLVAPTAN
     Indication: Oedema
     Dosage: UNK (HALF TABLET OF 15 MG 2 TO 3 TIMES A WEEK)
     Route: 048
     Dates: start: 2022, end: 202304

REACTIONS (7)
  - Pneumonia [Unknown]
  - Ill-defined disorder [Unknown]
  - Lithiasis [Unknown]
  - Dialysis [Unknown]
  - Blood creatinine increased [Unknown]
  - Wrong technique in product usage process [Unknown]
  - Product use in unapproved indication [Unknown]

NARRATIVE: CASE EVENT DATE: 20220101
